FAERS Safety Report 17294469 (Version 2)
Quarter: 2020Q1

REPORT INFORMATION
  Report Type: Spontaneous
  Country: CH (occurrence: CH)
  Receive Date: 20200121
  Receipt Date: 20200206
  Transmission Date: 20200409
  Serious: Yes (Hospitalization, Other)
  Sender: FDA-Public Use
  Company Number: CH-AMERICAN REGENT INC-2020000098

PATIENT
  Age: 38 Year
  Sex: Female

DRUGS (1)
  1. FERINJECT [Suspect]
     Active Substance: FERRIC CARBOXYMALTOSE
     Indication: IRON DEFICIENCY ANAEMIA
     Dosage: SINGLE INTRAVENOUS (1000 MG, 1 TOTAL)
     Route: 042
     Dates: start: 20191219, end: 20191219

REACTIONS (4)
  - Dizziness [Unknown]
  - Headache [Unknown]
  - Diplopia [Unknown]
  - Vertigo [Unknown]

NARRATIVE: CASE EVENT DATE: 20191220
